FAERS Safety Report 5429986-3 (Version None)
Quarter: 2007Q3

REPORT INFORMATION
  Report Type: 
  Country: None (occurrence: None)
  Receive Date: 20070829
  Receipt Date: 20070808
  Transmission Date: 20080115
  Serious: No
  Sender: FDA-Public Use
  Company Number: US-BOEHRINGER INGELHEIM PHARMACEUTICALS, INC.-2007-BP-18871BP

PATIENT
  Sex: Female

DRUGS (4)
  1. MIRAPEX [Suspect]
     Indication: RESTLESS LEGS SYNDROME
     Route: 048
     Dates: start: 20020501
  2. WATER PILL [Concomitant]
     Indication: MENIERE'S DISEASE
  3. LIPITOR [Concomitant]
     Indication: BLOOD CHOLESTEROL INCREASED
  4. LODINE [Concomitant]
     Indication: ARTHRITIS

REACTIONS (3)
  - INCREASED APPETITE [None]
  - PATHOLOGICAL GAMBLING [None]
  - WEIGHT INCREASED [None]
